FAERS Safety Report 24055101 (Version 1)
Quarter: 2024Q3

REPORT INFORMATION
  Report Type: Spontaneous
  Country: CN (occurrence: CN)
  Receive Date: 20240705
  Receipt Date: 20240705
  Transmission Date: 20241017
  Serious: Yes (Other)
  Sender: PAREXEL
  Company Number: CN-SHANGHAI JUNSHI BIOSCIENCES CO., LTD.-CN2024010421

PATIENT

DRUGS (5)
  1. TORIPALIMAB [Suspect]
     Active Substance: TORIPALIMAB
     Indication: Cholangiocarcinoma
     Dosage: 160 MG (D1), EVERY 21 DAYS
     Route: 041
     Dates: start: 20230222, end: 20230316
  2. GEMCITABINE HYDROCHLORIDE [Suspect]
     Active Substance: GEMCITABINE HYDROCHLORIDE
     Indication: Cholangiocarcinoma
     Dosage: 1.6 G (D1, D8), EVERY 21 DAYS
     Route: 041
     Dates: start: 20230222, end: 20230222
  3. GEMCITABINE HYDROCHLORIDE [Suspect]
     Active Substance: GEMCITABINE HYDROCHLORIDE
     Dosage: 1.6 G (D1, D8), EVERY 21 DAYS
     Dates: start: 20230316
  4. OXALIPLATIN [Suspect]
     Active Substance: OXALIPLATIN
     Indication: Cholangiocarcinoma
     Dosage: 200 MG (D1), EVERY 21 DAYS
     Route: 041
     Dates: start: 20230222, end: 20230222
  5. OXALIPLATIN [Suspect]
     Active Substance: OXALIPLATIN
     Dosage: 200 MG (D1), EVERY 21 DAYS
     Route: 041
     Dates: start: 20230316, end: 20230316

REACTIONS (4)
  - Myelosuppression [Unknown]
  - Nausea [Unknown]
  - Decreased appetite [Unknown]
  - Off label use [Unknown]

NARRATIVE: CASE EVENT DATE: 20230222
